FAERS Safety Report 16223850 (Version 1)
Quarter: 2019Q2

REPORT INFORMATION
  Report Type: Report from Study
  Country: PT (occurrence: PT)
  Receive Date: 20190422
  Receipt Date: 20190422
  Transmission Date: 20190711
  Serious: Yes (Other)
  Sender: FDA-Public Use
  Company Number: PT-PFIZER INC-2019168219

PATIENT
  Age: 83 Year
  Sex: Male
  Weight: 62 kg

DRUGS (11)
  1. FENTANYL. [Concomitant]
     Active Substance: FENTANYL
     Indication: PAIN
     Dosage: 12.5 UG, UNK
     Route: 062
     Dates: start: 20180205, end: 20180717
  2. ASPIRIN [ACETYLSALICYLIC ACID] [Concomitant]
     Active Substance: ASPIRIN
     Indication: THROMBOSIS PROPHYLAXIS
     Dosage: 100 MG, 1X/DAY
     Route: 065
     Dates: start: 20180424
  3. DEXAMETHASONE. [Suspect]
     Active Substance: DEXAMETHASONE
     Indication: PLASMA CELL MYELOMA
     Dosage: 12 MG, WEEKLY
     Route: 065
     Dates: start: 2018
  4. REVLIMID [Suspect]
     Active Substance: LENALIDOMIDE
     Dosage: 525 MG, CYCLIC (EVERY 28 DAYS)
     Route: 048
     Dates: start: 20180424
  5. ABIRATERONA [Concomitant]
     Indication: PROSTATE CANCER
     Dosage: 500 MG, 1X/DAY
     Route: 065
     Dates: start: 20150701, end: 20180424
  6. LEUPRORELINA [LEUPRORELIN] [Concomitant]
     Indication: PROSTATE CANCER
     Dosage: 45 MG, EVERY 6 MONTHS
     Route: 065
     Dates: start: 20151125
  7. ZOLEDRONIC ACID [Concomitant]
     Active Substance: ZOLEDRONIC ACID
     Indication: PROPHYLAXIS
     Dosage: 4 MG, EVERY 4 WEEKS
     Route: 065
     Dates: start: 20161107
  8. DOCETAXEL. [Suspect]
     Active Substance: DOCETAXEL
     Indication: PROSTATIC DISORDER
     Dosage: 40 MG, EVERY 2 WEEKS
     Route: 065
     Dates: start: 20180619, end: 20181108
  9. DEXAMETHASONE. [Suspect]
     Active Substance: DEXAMETHASONE
     Dosage: 20 MG, WEEKLY
     Route: 065
     Dates: start: 20180428
  10. REVLIMID [Suspect]
     Active Substance: LENALIDOMIDE
     Indication: PLASMA CELL MYELOMA
     Dosage: 315 MG, CYCLIC (EVERY 28 DAYS)
     Route: 048
     Dates: start: 20190329
  11. FILGRASTIM [Concomitant]
     Active Substance: FILGRASTIM
     Dosage: 12 MG, MONTHLY
     Route: 058
     Dates: start: 20180619, end: 20181114

REACTIONS (4)
  - Respiratory tract infection [Recovered/Resolved]
  - Anaemia [Recovered/Resolved]
  - Diarrhoea [Recovered/Resolved]
  - Dysgeusia [Not Recovered/Not Resolved]

NARRATIVE: CASE EVENT DATE: 20180716
